FAERS Safety Report 5392117-2 (Version None)
Quarter: 2007Q3

REPORT INFORMATION
  Report Type: 
  Country: None (occurrence: None)
  Receive Date: 20070720
  Receipt Date: 20070709
  Transmission Date: 20080115
  Serious: Yes (Other)
  Sender: FDA-Public Use
  Company Number: US-TYCO HEALTHCARE/MALLINCKRODT-T200700791

PATIENT

DRUGS (5)
  1. METHADOSE [Suspect]
     Indication: INTERVERTEBRAL DISC PROTRUSION
  2. HYDROMORPHONE HCL [Suspect]
     Indication: INTERVERTEBRAL DISC PROTRUSION
  3. PEGASYS [Suspect]
     Indication: HEPATITIS C VIRUS
     Dates: start: 20070417
  4. RIBAVIRIN [Suspect]
     Indication: HEPATITIS C VIRUS
     Dates: start: 20070417
  5. CELEXA [Concomitant]

REACTIONS (6)
  - DRUG INEFFECTIVE [None]
  - FATIGUE [None]
  - HOMICIDAL IDEATION [None]
  - INJECTION SITE ERYTHEMA [None]
  - INJECTION SITE PAIN [None]
  - SUICIDAL IDEATION [None]
